FAERS Safety Report 9999740 (Version 1)
Quarter: 2014Q1

REPORT INFORMATION
  Report Type: Spontaneous
  Country: US (occurrence: US)
  Receive Date: 20140312
  Receipt Date: 20140312
  Transmission Date: 20141002
  Serious: Yes (Hospitalization)
  Sender: FDA-Public Use
  Company Number: US-JNJFOC-20140306640

PATIENT
  Age: 57 Year
  Sex: Male
  Weight: 32.21 kg

DRUGS (7)
  1. XARELTO [Suspect]
     Indication: PULMONARY EMBOLISM
     Route: 048
     Dates: end: 20140307
  2. XARELTO [Suspect]
     Indication: PULMONARY EMBOLISM
     Route: 048
     Dates: start: 20140309
  3. CYCLOBENZAPRINE [Concomitant]
     Route: 065
  4. DULOXETINE [Concomitant]
     Route: 065
  5. PANTOPRAZOLE [Concomitant]
     Route: 065
  6. TESTOSTERONE [Concomitant]
     Route: 065
  7. TRAZODONE [Concomitant]
     Route: 065

REACTIONS (3)
  - Chest pain [Unknown]
  - International normalised ratio increased [Not Recovered/Not Resolved]
  - Troponin increased [Unknown]
